FAERS Safety Report 9555369 (Version 1)
Quarter: 2013Q3

REPORT INFORMATION
  Report Type: Spontaneous
  Country: BR (occurrence: BR)
  Receive Date: 20130926
  Receipt Date: 20130926
  Transmission Date: 20140515
  Serious: Yes (Hospitalization, Other)
  Sender: FDA-Public Use
  Company Number: BR-JNJFOC-20130911467

PATIENT
  Sex: Female
  Weight: 65 kg

DRUGS (9)
  1. REMICADE [Suspect]
     Indication: RHEUMATOID ARTHRITIS
     Route: 042
     Dates: start: 2010, end: 201210
  2. PREDNISONE [Concomitant]
     Indication: RHEUMATOID ARTHRITIS
     Route: 065
  3. DICLOFENAC SODIUM [Concomitant]
     Indication: RHEUMATOID ARTHRITIS
     Route: 065
  4. ACETAMINOPHEN [Concomitant]
     Indication: ARTHRALGIA
     Route: 065
  5. DIPYRONE [Concomitant]
     Indication: ARTHRALGIA
     Route: 065
  6. FOLIC ACID [Concomitant]
     Indication: GASTROINTESTINAL DISORDER THERAPY
     Route: 065
  7. FOLIC ACID [Concomitant]
     Indication: ANAEMIA PROPHYLAXIS
     Route: 065
  8. METHOTREXATE [Concomitant]
     Indication: RHEUMATOID ARTHRITIS
     Route: 065
  9. LOSARTAN [Concomitant]
     Indication: HYPERTENSION
     Route: 065

REACTIONS (3)
  - Knee arthroplasty [Recovered/Resolved]
  - Nosocomial infection [Recovered/Resolved]
  - Infusion related reaction [Recovered/Resolved]
